FAERS Safety Report 14571340 (Version 1)
Quarter: 2018Q1

REPORT INFORMATION
  Report Type: Spontaneous
  Country: US (occurrence: US)
  Receive Date: 20180223
  Receipt Date: 20180223
  Transmission Date: 20180509
  Serious: Yes (Other)
  Sender: FDA-Public Use
  Company Number: None

PATIENT
  Sex: Female
  Weight: 83.2 kg

DRUGS (2)
  1. ENDARI [Suspect]
     Active Substance: GLUTAMINE
     Indication: THALASSAEMIA SICKLE CELL
     Dosage: DOSE - 1 PACKET
     Route: 048
  2. ENDARI [Suspect]
     Active Substance: GLUTAMINE
     Indication: THALASSAEMIA
     Dosage: DOSE - 1 PACKET
     Route: 048

REACTIONS (3)
  - Drug dose omission [None]
  - Eye operation [None]
  - Impaired work ability [None]
